FAERS Safety Report 8325770-1 (Version None)
Quarter: 2012Q2

REPORT INFORMATION
  Report Type: 
  Country: None (occurrence: None)
  Receive Date: 20120501
  Receipt Date: 20120425
  Transmission Date: 20120825
  Serious: No
  Sender: FDA-Public Use
  Company Number: US-BIOGENIDEC-2012BI000248

PATIENT
  Age: 70 Year
  Sex: Female

DRUGS (1)
  1. TYSABRI [Suspect]
     Indication: MULTIPLE SCLEROSIS
     Route: 042
     Dates: start: 20111209

REACTIONS (9)
  - MULTIPLE SCLEROSIS [None]
  - BALANCE DISORDER [None]
  - SENSATION OF HEAVINESS [None]
  - GAIT DISTURBANCE [None]
  - HYPOAESTHESIA [None]
  - FATIGUE [None]
  - HEADACHE [None]
  - URINARY INCONTINENCE [None]
  - FEELING HOT [None]
